FAERS Safety Report 18461380 (Version 1)
Quarter: 2020Q4

REPORT INFORMATION
  Report Type: Spontaneous
  Country: US (occurrence: US)
  Receive Date: 20201103
  Receipt Date: 20201103
  Transmission Date: 20210114
  Serious: Yes (Other)
  Sender: FDA-Public Use
  Company Number: None

PATIENT
  Age: 58 Year
  Sex: Female
  Weight: 59.87 kg

DRUGS (6)
  1. GLATIRAMER ACETATE. [Suspect]
     Active Substance: GLATIRAMER ACETATE
     Indication: MULTIPLE SCLEROSIS
     Route: 058
     Dates: start: 201808, end: 201810
  2. CITALOPRAM [Concomitant]
     Active Substance: CITALOPRAM HYDROBROMIDE
  3. MULTIVITAMIN [Concomitant]
     Active Substance: VITAMINS
  4. ESTRADIOL. [Concomitant]
     Active Substance: ESTRADIOL
  5. VIT D+ K2 [Concomitant]
  6. COLLAGEN SUPPLEMENT GLUCOSAMINE/CHONDROITIN [Concomitant]

REACTIONS (6)
  - Injection site pain [None]
  - Injection site swelling [None]
  - Needle issue [None]
  - Product substitution issue [None]
  - Injection site erythema [None]
  - Product complaint [None]

NARRATIVE: CASE EVENT DATE: 201808
